FAERS Safety Report 4808372-0 (Version None)
Quarter: 2005Q4

REPORT INFORMATION
  Report Type: 
  Country: None (occurrence: None)
  Receive Date: 20051021
  Receipt Date: 20020121
  Transmission Date: 20060501
  Serious: Yes (Hospitalization)
  Sender: FDA-Public Use
  Company Number: EWC020631506

PATIENT
  Age: 24 Year
  Sex: Male
  Weight: 93 kg

DRUGS (1)
  1. OLANZAPINE [Suspect]
     Indication: MENTAL DISORDER
     Dosage: 10 MG/DAY
     Dates: start: 19990401

REACTIONS (3)
  - COAGULATION FACTOR VIII LEVEL ABNORMAL [None]
  - COAGULATION FACTOR XI LEVEL ABNORMAL [None]
  - PULMONARY EMBOLISM [None]
